FAERS Safety Report 6536937-7 (Version None)
Quarter: 2010Q1

REPORT INFORMATION
  Report Type: 
  Country: None (occurrence: None)
  Receive Date: 20100113
  Receipt Date: 20100108
  Transmission Date: 20100710
  Serious: Yes (Other)
  Sender: FDA-Public Use
  Company Number: US-AMGEN-US383670

PATIENT
  Sex: Male
  Weight: 53.1 kg

DRUGS (11)
  1. NPLATE [Suspect]
     Indication: IDIOPATHIC THROMBOCYTOPENIC PURPURA
     Route: 058
     Dates: start: 20091211
  2. METOPROLOL [Concomitant]
     Route: 065
  3. DIGOXIN [Concomitant]
     Route: 065
  4. OMEPRAZOLE [Concomitant]
     Route: 065
  5. MAVIK [Concomitant]
     Route: 065
  6. IRON [Concomitant]
     Route: 065
  7. CARDURA [Concomitant]
     Route: 065
  8. TRAMADOL HCL [Concomitant]
     Route: 065
  9. LORATADINE [Concomitant]
     Route: 065
  10. SENOKOT [Concomitant]
     Route: 065
  11. NITROGLYCERIN [Concomitant]
     Route: 065

REACTIONS (1)
  - CARDIAC FAILURE CONGESTIVE [None]
